FAERS Safety Report 4312114-5 (Version None)
Quarter: 2004Q1

REPORT INFORMATION
  Report Type: 
  Country: None (occurrence: None)
  Receive Date: 20040303
  Receipt Date: 19980811
  Transmission Date: 20041129
  Serious: Yes (Death)
  Sender: FDA-Public Use
  Company Number: CL-199500225

PATIENT
  Age: 64 Year
  Sex: Female
  Weight: 50 kg

DRUGS (10)
  1. INFLIXIMAB (INFLIXIMAB, RECOMBINANT) LYOPHILIZED POWDER [Suspect]
     Indication: RHEUMATOID ARTHRITIS
     Dosage: 10 MG/KG, INTRAVENOUS
     Route: 042
     Dates: start: 19941129
  2. INFLIXIMAB (INFLIXIMAB, RECOMBINANT) LYOPHILIZED POWDER [Suspect]
     Indication: RHEUMATOID ARTHRITIS
     Dosage: 10 MG/KG, INTRAVENOUS
     Route: 042
     Dates: start: 19941213
  3. INFLIXIMAB (INFLIXIMAB, RECOMBINANT) LYOPHILIZED POWDER [Suspect]
     Indication: RHEUMATOID ARTHRITIS
     Dosage: 10 MG/KG, INTRAVENOUS
     Route: 042
     Dates: start: 19950110
  4. METHOTREXATE [Concomitant]
  5. DOXAZOSIN MESYLATE [Concomitant]
  6. DICLOFENAC SODIUM [Concomitant]
  7. COPROXAMOL (APOREX) [Concomitant]
  8. OMEPRAZOLE [Concomitant]
  9. IMIPRAMINE [Concomitant]
  10. HORMONE REPLACEMENT THERAPY (ANDROGENS AND FEMALE SEX HORMONES IN COMB [Concomitant]

REACTIONS (21)
  - ABASIA [None]
  - ACUTE MYOCARDIAL INFARCTION [None]
  - ARRHYTHMIA [None]
  - CARDIOVASCULAR DISORDER [None]
  - DEPRESSED LEVEL OF CONSCIOUSNESS [None]
  - DIARRHOEA [None]
  - DIZZINESS [None]
  - FEELING ABNORMAL [None]
  - HALLUCINATION [None]
  - HYPERCOAGULATION [None]
  - HYPOTENSION [None]
  - LIVER DISORDER [None]
  - LIVER FUNCTION TEST ABNORMAL [None]
  - LUNG DISORDER [None]
  - OEDEMA [None]
  - OLIGURIA [None]
  - ORGAN FAILURE [None]
  - PNEUMONIA STAPHYLOCOCCAL [None]
  - RHEUMATOID ARTHRITIS [None]
  - SEPTIC SHOCK [None]
  - VENTRICULAR TACHYCARDIA [None]
